FAERS Safety Report 9904404 (Version 2)
Quarter: 2014Q1

REPORT INFORMATION
  Report Type: Report from Study
  Country: GB (occurrence: GB)
  Receive Date: 20140218
  Receipt Date: 20140318
  Transmission Date: 20141002
  Serious: Yes (Death)
  Sender: FDA-Public Use
  Company Number: GB-ROCHE-1351014

PATIENT
  Sex: Male

DRUGS (10)
  1. RANIBIZUMAB [Suspect]
     Indication: AGE-RELATED MACULAR DEGENERATION
     Route: 050
     Dates: start: 20101119
  2. RANIBIZUMAB [Suspect]
     Route: 050
     Dates: start: 20130607
  3. ALENDRONIC ACID [Concomitant]
     Route: 065
     Dates: start: 20130326
  4. ASPIRIN [Concomitant]
     Route: 065
     Dates: start: 2009
  5. DOXAZOSIN [Concomitant]
     Route: 065
     Dates: start: 2009
  6. METFORMIN [Concomitant]
     Route: 065
     Dates: start: 2009
  7. GLIPIZIDE [Concomitant]
     Route: 065
     Dates: start: 2009
  8. PREDNISOLONE [Concomitant]
     Route: 065
     Dates: start: 20090717
  9. RAMIPRIL [Concomitant]
     Route: 065
     Dates: start: 20090717
  10. SIMVASTATIN [Concomitant]
     Route: 065
     Dates: start: 20090605

REACTIONS (1)
  - Multi-organ failure [Fatal]
